FAERS Safety Report 21884308 (Version 1)
Quarter: 2023Q1

REPORT INFORMATION
  Report Type: Spontaneous
  Country: CH (occurrence: CH)
  Receive Date: 20230119
  Receipt Date: 20230119
  Transmission Date: 20230417
  Serious: Yes (Hospitalization)
  Sender: FDA-Public Use
  Company Number: None

PATIENT
  Age: 76 Year
  Sex: Male

DRUGS (15)
  1. EUTHYROX [Suspect]
     Active Substance: LEVOTHYROXINE SODIUM
     Indication: Hypothyroidism
     Dosage: EUTHYROX (LEVOTHYROXINE SODIUM) 100MCG, EUTHYROX FOR HYPOTHYROIDISM
     Route: 048
  2. SERTRALINE [Suspect]
     Active Substance: SERTRALINE HYDROCHLORIDE
     Indication: Depression
     Dosage: SERTRALINE (SERTRALINE) 50MG, PO (1-0-0-0)
     Route: 048
  3. PHENPROCOUMON [Suspect]
     Active Substance: PHENPROCOUMON
     Indication: Angiodysplasia
     Dosage: MARCOUMAR (PHENPROCOUMON) 3MG PER ORAL (PO); INR TARGET RANGE 1.8-2
     Route: 048
  4. ALDACTONE [Suspect]
     Active Substance: SPIRONOLACTONE
     Indication: Oedema
     Dosage: ALDACTONE (SPIRONOLACTONE) 25MG PO (0-1-0-0)
     Route: 048
  5. ALDACTONE [Suspect]
     Active Substance: SPIRONOLACTONE
     Indication: Cardiac failure
  6. PHYTONADIONE [Concomitant]
     Active Substance: PHYTONADIONE
     Indication: Product used for unknown indication
     Dosage: KONAKION MM INJ. SOLUTION (PHYTOMENADIONE (VITAMIN K1)) 10MG/1ML, (1-0-0-0)
     Route: 048
  7. CARVEDILOL [Concomitant]
     Active Substance: CARVEDILOL
     Indication: Product used for unknown indication
     Dosage: CARVEDILOL MEPHA TBL. (CARVEDILOL) 6.25MG; P.O. (0-1/2-1/2-0)
     Route: 048
  8. TORSEMIDE [Concomitant]
     Active Substance: TORSEMIDE
     Indication: Product used for unknown indication
     Dosage: TOREM  TBL. (TORASEMID) 200MG (1/2-0-0-0)
     Route: 048
  9. METOLAZONE [Concomitant]
     Active Substance: METOLAZONE
     Indication: Product used for unknown indication
     Dosage: METOLAZON GALEPHARM (METALOZON) 5MG; P.O. (0-1-0-0)
     Route: 048
  10. TAMSULOSIN HYDROCHLORIDE [Concomitant]
     Active Substance: TAMSULOSIN HYDROCHLORIDE
     Indication: Product used for unknown indication
     Dosage: TAMSULOSIN SANDOZ ECO RET. KAPS. (TAMSULOSIN) 0.4 MG (0-1-0-0)
     Route: 048
  11. KCL HAUSMANN [Concomitant]
     Indication: Product used for unknown indication
     Dosage: DRAG. (POTASSIUM) 10MMOL; PO (1-0-1-0)
     Route: 048
  12. MAGNESIUM DIASPORAL [MAGNESIUM CITRATE] [Concomitant]
     Indication: Product used for unknown indication
     Dosage: MAGNESIUM DIASPORAL GRAN. (MAGNESIUM) 300MG (12.4MMOL); P.O. (2-0-0-0)
     Route: 048
  13. MINERAL OIL [Concomitant]
     Active Substance: MINERAL OIL
     Indication: Product used for unknown indication
     Dosage: PARAGOL N EMULSION (PARAFFIN); P.O. (20-0-20-0)
     Route: 048
  14. PANTOPRAZOLE SODIUM [Concomitant]
     Active Substance: PANTOPRAZOLE SODIUM
     Indication: Product used for unknown indication
     Dosage: PANTOPRAZOL SANDOZ TBL. (PANTOPRAZOL) 40MG; P.O. (0-0-1-0)
     Route: 048
  15. OXAZEPAM [Concomitant]
     Active Substance: OXAZEPAM
     Indication: Product used for unknown indication
     Dosage: SERESTA TBL. (OXAZEPAM) 15MG; P.O. (0-0-0-1)
     Route: 048

REACTIONS (1)
  - Gastrointestinal haemorrhage [Not Recovered/Not Resolved]

NARRATIVE: CASE EVENT DATE: 20220101
